FAERS Safety Report 18505412 (Version 4)
Quarter: 2022Q1

REPORT INFORMATION
  Report Type: Spontaneous
  Country: US (occurrence: US)
  Receive Date: 20201116
  Receipt Date: 20220123
  Transmission Date: 20220423
  Serious: Yes (Other)
  Sender: FDA-Public Use
  Company Number: US-JNJFOC-20201118647

PATIENT
  Age: 62 Year
  Sex: Female

DRUGS (72)
  1. ELMIRON [Suspect]
     Active Substance: PENTOSAN POLYSULFATE SODIUM
     Indication: Cystitis interstitial
     Route: 048
     Dates: start: 20010101, end: 2001
  2. ELMIRON [Suspect]
     Active Substance: PENTOSAN POLYSULFATE SODIUM
     Dosage: MULTIPLE PILLS DAILY, 3-9 PILLS PER DAY EVERY WEEK
     Route: 048
     Dates: start: 20010601
  3. ELMIRON [Suspect]
     Active Substance: PENTOSAN POLYSULFATE SODIUM
     Dosage: MULTIPLE PILLS DAILY, 3-9 PILLS PER DAY EVERY WEEK
     Route: 048
     Dates: start: 200506, end: 20190919
  4. ELMIRON [Suspect]
     Active Substance: PENTOSAN POLYSULFATE SODIUM
     Route: 048
     Dates: end: 20200130
  5. LISINOPRIL [Concomitant]
     Active Substance: LISINOPRIL
     Indication: Blood pressure measurement
     Route: 065
     Dates: start: 20100701
  6. ZOLPIDEM TARTRATE [Concomitant]
     Active Substance: ZOLPIDEM TARTRATE
     Indication: Insomnia
     Route: 065
     Dates: start: 20100710
  7. CARVEDILOL [Concomitant]
     Active Substance: CARVEDILOL
     Indication: Blood pressure measurement
     Route: 065
     Dates: start: 20100721, end: 20160223
  8. MUPIROCIN [Concomitant]
     Active Substance: MUPIROCIN
     Indication: Skin infection
     Route: 065
     Dates: start: 20150715, end: 20150815
  9. GABAPENTIN [Concomitant]
     Active Substance: GABAPENTIN
     Indication: Seizure prophylaxis
     Route: 065
     Dates: start: 20100724
  10. AMITRIPTYLINE [Concomitant]
     Active Substance: AMITRIPTYLINE
     Indication: Antidepressant therapy
     Route: 065
     Dates: start: 20100825, end: 20170810
  11. AMITRIPTYLINE [Concomitant]
     Active Substance: AMITRIPTYLINE
     Indication: Depression
     Route: 065
     Dates: start: 20060406
  12. CIPROFLOXACIN [Concomitant]
     Active Substance: CIPROFLOXACIN
     Indication: Antibiotic therapy
     Route: 065
     Dates: start: 20120131, end: 20120331
  13. ONDANSETRON [Concomitant]
     Active Substance: ONDANSETRON
     Indication: Nausea
     Route: 065
     Dates: start: 20150721, end: 20150821
  14. AZITHROMYCIN [Concomitant]
     Active Substance: AZITHROMYCIN
     Indication: Antibiotic therapy
     Route: 065
     Dates: start: 20151231, end: 20160130
  15. OXYCODONE AND ACETAMINOPHEN [Concomitant]
     Active Substance: ACETAMINOPHEN\OXYCODONE HYDROCHLORIDE
     Indication: Analgesic therapy
     Route: 065
     Dates: start: 20120523
  16. PROMETHAZINE [Concomitant]
     Active Substance: PROMETHAZINE HYDROCHLORIDE
     Indication: Nausea
     Route: 065
     Dates: start: 20120523, end: 20120623
  17. DEXAMETHASONE\NEOMYCIN\POLYMYXIN B [Concomitant]
     Active Substance: DEXAMETHASONE\NEOMYCIN\POLYMYXIN B
     Indication: Antibiotic therapy
  18. BACITRACIN [Concomitant]
     Active Substance: BACITRACIN
     Indication: Antibiotic therapy
     Route: 065
     Dates: start: 20180223
  19. ANGELIQ [DROSPIRENONE;ESTRADIOL] [Concomitant]
     Indication: Menopause
     Route: 065
     Dates: start: 20090603
  20. CHLORTHALIDONE [Concomitant]
     Active Substance: CHLORTHALIDONE
     Indication: Hypertension
     Route: 065
     Dates: start: 20100708, end: 20150730
  21. BONIVA [Concomitant]
     Active Substance: IBANDRONATE SODIUM
     Indication: Osteoporosis prophylaxis
     Route: 065
     Dates: start: 20060406, end: 20180111
  22. PRAVASTATIN [Concomitant]
     Active Substance: PRAVASTATIN
     Indication: Blood cholesterol increased
     Route: 065
     Dates: start: 20100718
  23. HYDROXYZINE [Concomitant]
     Active Substance: HYDROXYZINE HYDROCHLORIDE
     Indication: Multiple allergies
     Route: 065
     Dates: start: 20051006
  24. DARVOCET [Concomitant]
     Active Substance: ACETAMINOPHEN\PROPOXYPHENE HYDROCHLORIDE
     Indication: Analgesic therapy
     Route: 065
     Dates: start: 20100803, end: 20201210
  25. DARVOCET [Concomitant]
     Active Substance: ACETAMINOPHEN\PROPOXYPHENE HYDROCHLORIDE
     Route: 065
     Dates: start: 20051006, end: 20201210
  26. KEFLEX [Concomitant]
     Active Substance: CEPHALEXIN
     Indication: Antibiotic therapy
     Route: 065
     Dates: start: 20100929, end: 20101030
  27. TRAMADOL [Concomitant]
     Active Substance: TRAMADOL
     Indication: Analgesic therapy
     Route: 065
     Dates: start: 20101210
  28. BACTRIM [Concomitant]
     Active Substance: SULFAMETHOXAZOLE\TRIMETHOPRIM
     Indication: Bacterial infection
     Route: 065
     Dates: start: 20110901, end: 20110922
  29. PHENAZOPYRIDINE [Concomitant]
     Active Substance: PHENAZOPYRIDINE
     Indication: Urinary tract infection
     Route: 065
     Dates: start: 20110901, end: 20111001
  30. AMOXICILLIN [Concomitant]
     Active Substance: AMOXICILLIN
     Indication: Antibiotic therapy
     Route: 065
     Dates: start: 20120520, end: 20120620
  31. VALTREX [Concomitant]
     Active Substance: VALACYCLOVIR HYDROCHLORIDE
     Indication: Hepatitis
     Route: 065
     Dates: start: 20090729, end: 20160223
  32. BELSOMRA [Concomitant]
     Active Substance: SUVOREXANT
     Indication: Insomnia
     Route: 065
     Dates: start: 20160516, end: 20161221
  33. CITALOPRAM [Concomitant]
     Active Substance: CITALOPRAM HYDROBROMIDE
     Indication: Depression
     Route: 065
     Dates: start: 20160906
  34. ZYLET [Concomitant]
     Active Substance: LOTEPREDNOL ETABONATE\TOBRAMYCIN
     Indication: Eye infection
     Route: 065
     Dates: start: 20161202
  35. MOMETASONE FUROATE [Concomitant]
     Active Substance: MOMETASONE FUROATE
     Indication: Erythema
     Route: 065
     Dates: start: 20161214
  36. MEDROXYPROGESTERONE [Concomitant]
     Active Substance: MEDROXYPROGESTERONE
     Indication: Hormone level abnormal
     Route: 065
     Dates: start: 20161220
  37. FLUCONAZOLE [Concomitant]
     Active Substance: FLUCONAZOLE
     Indication: Fungal infection
     Route: 065
     Dates: start: 20161226, end: 20170126
  38. LOTEMAX [Concomitant]
     Active Substance: LOTEPREDNOL ETABONATE
     Indication: Eye infection
     Route: 065
     Dates: start: 20160316, end: 20160416
  39. ERYTHROMYCIN [Concomitant]
     Active Substance: ERYTHROMYCIN
     Indication: Bacterial infection
     Route: 065
     Dates: start: 20170316, end: 20170420
  40. DICLOFENAC [Concomitant]
     Active Substance: DICLOFENAC
     Indication: Arthritis
     Route: 065
     Dates: start: 20170628
  41. NABUMETONE [Concomitant]
     Active Substance: NABUMETONE
     Indication: Arthritis
     Route: 065
     Dates: start: 20170720
  42. CEFADROXIL [Concomitant]
     Active Substance: CEFADROXIL
     Indication: Skin infection
     Route: 065
     Dates: start: 20170922
  43. NITROFURANTOIN MONOHYDRATE [Concomitant]
     Active Substance: NITROFURANTOIN MONOHYDRATE
     Indication: Urinary tract infection
     Route: 065
     Dates: start: 20180103, end: 20180203
  44. DIAZEPAM [Concomitant]
     Active Substance: DIAZEPAM
     Indication: Muscle spasms
     Route: 065
     Dates: start: 20180301, end: 20180401
  45. NYSTADERMAL [Concomitant]
     Indication: Skin infection
     Route: 065
     Dates: start: 20180409, end: 20180509
  46. ONDANSETRON [Concomitant]
     Active Substance: ONDANSETRON
     Indication: Nausea
     Route: 065
     Dates: start: 20180429, end: 20190529
  47. CLINDAMYCIN [Concomitant]
     Active Substance: CLINDAMYCIN
     Indication: Skin infection
     Route: 065
     Dates: start: 20180828, end: 20180928
  48. BENZONATATE [Concomitant]
     Active Substance: BENZONATATE
     Indication: Cough
     Route: 065
     Dates: start: 20200104, end: 20200204
  49. PREDNISONE [Concomitant]
     Active Substance: PREDNISONE
     Indication: Steroid therapy
     Route: 065
     Dates: start: 20200104, end: 20200204
  50. AMBIEN [Concomitant]
     Active Substance: ZOLPIDEM TARTRATE
     Indication: Insomnia
     Route: 065
     Dates: start: 20090914
  51. CELEXA [Concomitant]
     Active Substance: CITALOPRAM HYDROBROMIDE
     Indication: Depression
     Route: 065
     Dates: start: 20170703, end: 20180202
  52. CIPRO [Concomitant]
     Active Substance: CIPROFLOXACIN HYDROCHLORIDE
     Indication: Antibiotic therapy
     Route: 065
     Dates: start: 20090512, end: 20200813
  53. COMBIPATCH [Concomitant]
     Active Substance: ESTRADIOL\NORETHINDRONE ACETATE
     Indication: Hormone therapy
     Route: 065
     Dates: start: 20080124, end: 20090526
  54. DIFLUCAN [Concomitant]
     Active Substance: FLUCONAZOLE
     Indication: Fungal infection
     Route: 065
     Dates: start: 20200629, end: 20200729
  55. ELAVIL [Concomitant]
     Active Substance: AMITRIPTYLINE HYDROCHLORIDE
     Indication: Depression
     Route: 065
     Dates: start: 20051006
  56. FLEXERIL [Concomitant]
     Active Substance: CYCLOBENZAPRINE HYDROCHLORIDE
     Indication: Muscle spasms
     Route: 065
     Dates: start: 20160223, end: 20160323
  57. LO LOESTRIN FE [Concomitant]
     Active Substance: ETHINYL ESTRADIOL\NORETHINDRONE ACETATE
     Indication: Contraception
     Route: 065
     Dates: start: 20080501, end: 20090526
  58. LORTAB [Concomitant]
     Active Substance: ACETAMINOPHEN\HYDROCODONE BITARTRATE
     Indication: Analgesic therapy
     Route: 065
     Dates: start: 20110922, end: 20131005
  59. LYRICA [Concomitant]
     Active Substance: PREGABALIN
     Indication: Infection
     Route: 065
     Dates: start: 20170131
  60. FOSAMAX [Concomitant]
     Active Substance: ALENDRONATE SODIUM
     Indication: Osteoporosis
     Route: 065
     Dates: start: 20051006, end: 20060406
  61. MACROBID [Concomitant]
     Active Substance: NITROFURANTOIN\NITROFURANTOIN MONOHYDRATE
     Indication: Cystitis
     Route: 065
     Dates: start: 20060825, end: 20200813
  62. NEURONTIN [Concomitant]
     Active Substance: GABAPENTIN
     Indication: Neuralgia
     Route: 065
     Dates: start: 20071207
  63. NORCO [Concomitant]
     Active Substance: ACETAMINOPHEN\HYDROCODONE BITARTRATE
     Indication: Analgesic therapy
     Route: 065
     Dates: start: 20131215, end: 20141021
  64. ORTHO TRI CYCLEN [Concomitant]
     Active Substance: ETHINYL ESTRADIOL\NORGESTIMATE
     Indication: Contraception
     Route: 065
     Dates: start: 20051006, end: 20080124
  65. PERCOCET [Concomitant]
     Active Substance: ACETAMINOPHEN\OXYCODONE HYDROCHLORIDE
     Indication: Analgesic therapy
     Route: 065
     Dates: start: 20170117, end: 20170130
  66. PRAVACHOL [Concomitant]
     Active Substance: PRAVASTATIN SODIUM
     Indication: Blood cholesterol increased
     Route: 065
     Dates: start: 20150620, end: 20190602
  67. PROLIA [Concomitant]
     Active Substance: DENOSUMAB
     Indication: Osteoporosis
     Route: 065
     Dates: start: 20180111, end: 20200130
  68. PROVERA [Concomitant]
     Active Substance: MEDROXYPROGESTERONE ACETATE
     Indication: Haemorrhage
     Route: 065
     Dates: start: 20161220, end: 20170130
  69. PYRIDIUM [Concomitant]
     Active Substance: PHENAZOPYRIDINE
     Indication: Urinary tract infection
     Route: 065
     Dates: start: 20081015, end: 20120328
  70. TOPROL XL [Concomitant]
     Active Substance: METOPROLOL SUCCINATE
     Indication: Hypertension
     Route: 065
     Dates: start: 20080124, end: 20100629
  71. ULTRACET [Concomitant]
     Active Substance: ACETAMINOPHEN\TRAMADOL HYDROCHLORIDE
     Indication: Analgesic therapy
     Route: 065
     Dates: start: 20141021, end: 20170810
  72. ULTRAM [Concomitant]
     Active Substance: TRAMADOL HYDROCHLORIDE
     Indication: Analgesic therapy
     Route: 065
     Dates: start: 20101210, end: 20190124

REACTIONS (5)
  - Dry age-related macular degeneration [Not Recovered/Not Resolved]
  - Maculopathy [Not Recovered/Not Resolved]
  - Hypermetropia [Unknown]
  - Astigmatism [Unknown]
  - Presbyopia [Unknown]

NARRATIVE: CASE EVENT DATE: 20140101
